FAERS Safety Report 8985578 (Version 1)
Quarter: 2012Q4

REPORT INFORMATION
  Report Type: 
  Country: CN (occurrence: CN)
  Receive Date: 20121226
  Receipt Date: 20121226
  Transmission Date: 20130627
  Serious: Yes (Hospitalization)
  Sender: FDA-Public Use
  Company Number: CN-JNJFOC-20121207582

PATIENT
  Age: 30 Year
  Sex: Male

DRUGS (1)
  1. RISPERDAL [Suspect]
     Indication: SCHIZOPHRENIA
     Route: 048
     Dates: start: 201109

REACTIONS (3)
  - Haematuria [Unknown]
  - Transaminases increased [Recovering/Resolving]
  - Proteinuria [Unknown]
